FAERS Safety Report 8928554 (Version 1)
Quarter: 2012Q4

REPORT INFORMATION
  Report Type: Spontaneous
  Country: GB (occurrence: None)
  Receive Date: 20121119
  Receipt Date: 20121119
  Transmission Date: 20130627
  Serious: Yes (Hospitalization)
  Sender: FDA-Public Use
  Company Number: VENL20120014

PATIENT
  Age: 30 Year
  Sex: Male

DRUGS (1)
  1. VENLAFAXINE HCL [Suspect]
     Indication: DEPRESSION
     Route: 048
     Dates: start: 201205

REACTIONS (10)
  - Pancreatitis acute [None]
  - Systemic inflammatory response syndrome [None]
  - Hyperlipidaemia [None]
  - Blood pH decreased [None]
  - Blood glucose increased [None]
  - Pulmonary oedema [None]
  - Pleural effusion [None]
  - Atelectasis [None]
  - Acute respiratory distress syndrome [None]
  - Transfusion-related acute lung injury [None]
